FAERS Safety Report 11758139 (Version 1)
Quarter: 2015Q4

REPORT INFORMATION
  Report Type: Spontaneous
  Country: US (occurrence: US)
  Receive Date: 20151120
  Receipt Date: 20151120
  Transmission Date: 20160304
  Serious: No
  Sender: FDA-Public Use
  Company Number: US-PERRIGO-14US012323

PATIENT
  Sex: Female
  Weight: 52.15 kg

DRUGS (8)
  1. XANAX [Concomitant]
     Active Substance: ALPRAZOLAM
     Indication: ANXIETY
     Dosage: UNK
     Route: 065
     Dates: start: 1988
  2. SYNTHROID [Concomitant]
     Active Substance: LEVOTHYROXINE SODIUM
     Indication: TUMOUR EXCISION
     Dosage: 50 MCG, UNK
     Route: 065
     Dates: start: 1993
  3. PROZAC [Concomitant]
     Active Substance: FLUOXETINE HYDROCHLORIDE
     Indication: ANXIETY
     Dosage: UNK
     Route: 065
     Dates: start: 201409
  4. POTASSIUM [Concomitant]
     Active Substance: POTASSIUM
     Indication: SUPPLEMENTATION THERAPY
     Dosage: UNK
     Route: 065
     Dates: start: 201312
  5. FAMOTIDINE. [Suspect]
     Active Substance: FAMOTIDINE
     Indication: DYSPEPSIA
     Dosage: 20 MG, DAILY AS NEEDED
     Route: 048
     Dates: start: 2012
  6. XANAX [Concomitant]
     Active Substance: ALPRAZOLAM
     Indication: INSOMNIA
  7. OMEPRAZOLE. [Concomitant]
     Active Substance: OMEPRAZOLE
     Indication: DYSPEPSIA
     Dosage: UNK
     Route: 048
     Dates: end: 2013
  8. ATENOLOL AND CHLORTHALIDONE [Concomitant]
     Active Substance: ATENOLOL\CHLORTHALIDONE
     Indication: HYPERTENSION
     Dosage: UNK
     Route: 065
     Dates: start: 201406

REACTIONS (1)
  - Drug ineffective [Unknown]

NARRATIVE: CASE EVENT DATE: 2012
